FAERS Safety Report 18952437 (Version 1)
Quarter: 2021Q1

REPORT INFORMATION
  Report Type: Spontaneous
  Country: FR (occurrence: FR)
  Receive Date: 20210301
  Receipt Date: 20210301
  Transmission Date: 20210420
  Serious: Yes (Hospitalization, Other)
  Sender: FDA-Public Use
  Company Number: FR-SUN PHARMACEUTICAL INDUSTRIES LTD-2021RR-283219

PATIENT
  Age: 85 Year
  Sex: Male

DRUGS (4)
  1. CANRENOATE [Concomitant]
     Active Substance: CANRENOIC ACID
     Indication: DIURETIC THERAPY
     Dosage: 100 MILLIGRAM, BID
     Route: 065
  2. VALSARTAN. [Suspect]
     Active Substance: VALSARTAN
     Indication: PRODUCT USED FOR UNKNOWN INDICATION
     Dosage: 40 MILLIGRAM, DAILY
     Route: 065
  3. BUMETANIDE. [Suspect]
     Active Substance: BUMETANIDE
     Indication: DIURETIC THERAPY
     Dosage: 25 MILLIGRAM, DAILY
     Route: 065
  4. HYDROCHLOROTHIAZIDE. [Suspect]
     Active Substance: HYDROCHLOROTHIAZIDE
     Indication: DIURETIC THERAPY
     Dosage: 50 MILLIGRAM, DAILY
     Route: 065

REACTIONS (4)
  - Therapeutic product effect incomplete [Unknown]
  - Hypotension [Recovering/Resolving]
  - Oliguria [Recovered/Resolved]
  - Renal impairment [Recovered/Resolved]
